FAERS Safety Report 7177208-8 (Version None)
Quarter: 2010Q4

REPORT INFORMATION
  Report Type: 
  Country: None (occurrence: None)
  Receive Date: 20101215
  Receipt Date: 20101215
  Transmission Date: 20110411
  Serious: Yes (Hospitalization)
  Sender: FDA-Public Use
  Company Number: None

PATIENT
  Sex: Female
  Weight: 61 kg

DRUGS (4)
  1. CISPLATIN [Suspect]
     Dosage: 128 MG
     Dates: end: 20101206
  2. ALIMTA [Suspect]
     Dosage: 850 MG
     Dates: end: 20101206
  3. ACETAMINOPHEN AND HYDROCODONE BITARTRATE [Concomitant]
  4. MORPHINE SULFATE [Concomitant]

REACTIONS (2)
  - NAUSEA [None]
  - VOMITING [None]
